FAERS Safety Report 26012081 (Version 1)
Quarter: 2025Q4

REPORT INFORMATION
  Report Type: Spontaneous
  Country: US (occurrence: US)
  Receive Date: 20251107
  Receipt Date: 20251107
  Transmission Date: 20260117
  Serious: No
  Sender: BIOMARIN
  Company Number: US-SA-2025SA317538

PATIENT
  Sex: Female

DRUGS (1)
  1. LARONIDASE [Suspect]
     Active Substance: LARONIDASE
     Indication: Mucopolysaccharidosis I
     Dosage: 2.9 TOTAL DOSE ADMINISTERED, QW
     Dates: start: 202509

REACTIONS (1)
  - Human rhinovirus test positive [Unknown]

NARRATIVE: CASE EVENT DATE: 20250101
